FAERS Safety Report 9915883 (Version 1)
Quarter: 2014Q1

REPORT INFORMATION
  Report Type: Spontaneous
  Country: US (occurrence: None)
  Receive Date: 20140219
  Receipt Date: 20140219
  Transmission Date: 20141002
  Serious: Yes (Death)
  Sender: FDA-Public Use
  Company Number: 2014020127

PATIENT
  Age: 62 Year
  Sex: Male

DRUGS (1)
  1. ACETAMINOPHEN, DEXTROMETHORPHAN, DOXYLAMINE [Suspect]

REACTIONS (2)
  - Drug abuse [None]
  - Exposure via ingestion [None]
